FAERS Safety Report 4464064-1 (Version None)
Quarter: 2004Q4

REPORT INFORMATION
  Report Type: 
  Country: None (occurrence: None)
  Receive Date: 20041001
  Receipt Date: 20040922
  Transmission Date: 20050328
  Serious: Yes (Life-Threatening, Hospitalization)
  Sender: FDA-Public Use
  Company Number: PT-JNJFOC-20040903191

PATIENT
  Sex: Male

DRUGS (3)
  1. RISPERDAL [Suspect]
     Route: 049
  2. ARTANE [Concomitant]
     Route: 049
  3. DIAZEPAM [Concomitant]
     Dosage: 5 MG STRENGTH
     Route: 049

REACTIONS (1)
  - NEUROLEPTIC MALIGNANT SYNDROME [None]
